FAERS Safety Report 9308698 (Version 3)
Quarter: 2014Q1

REPORT INFORMATION
  Report Type: Spontaneous
  Country: GB (occurrence: GB)
  Receive Date: 20130524
  Receipt Date: 20140124
  Transmission Date: 20141002
  Serious: Yes (Life-Threatening, Other)
  Sender: FDA-Public Use
  Company Number: PHHY2013GB052173

PATIENT
  Age: 75 Year
  Sex: Female
  Weight: 61 kg

DRUGS (6)
  1. AZITHROMYCIN [Suspect]
     Indication: TRACHEOBRONCHITIS
     Dosage: 500 MG
     Route: 048
     Dates: start: 20130310, end: 20130312
  2. SIMVASTATIN [Concomitant]
     Indication: HYPERTENSION
     Dosage: 20 MG
     Route: 048
     Dates: start: 2002
  3. PERINDOPRIL [Concomitant]
     Indication: HYPERTENSION
     Dosage: 4 MG
     Route: 048
     Dates: start: 2002
  4. VERAPAMIL [Concomitant]
     Indication: ATRIAL FIBRILLATION
     Dosage: 120 MG
     Route: 048
     Dates: start: 2010
  5. TIBOLONE [Concomitant]
     Dosage: 1 DF QD
  6. WARFARIN [Concomitant]

REACTIONS (7)
  - Circulatory collapse [Recovered/Resolved]
  - Apnoea [Recovered/Resolved]
  - Condition aggravated [Recovered/Resolved]
  - Cyanosis [Recovered/Resolved]
  - Loss of consciousness [Recovered/Resolved]
  - Arrhythmia [Recovered/Resolved]
  - Electrocardiogram QT prolonged [Recovered/Resolved]
